FAERS Safety Report 22007534 (Version 1)
Quarter: 2023Q1

REPORT INFORMATION
  Report Type: Spontaneous
  Country: US (occurrence: US)
  Receive Date: 20230218
  Receipt Date: 20230218
  Transmission Date: 20230417
  Serious: No
  Sender: FDA-Public Use
  Company Number: US-ELI_LILLY_AND_COMPANY-US202302004977

PATIENT
  Sex: Male

DRUGS (15)
  1. HUMALOG [Suspect]
     Active Substance: INSULIN LISPRO
     Indication: Product used for unknown indication
     Dosage: UNK UNK, UNKNOWN
     Route: 065
  2. HUMALOG [Suspect]
     Active Substance: INSULIN LISPRO
     Dosage: 11 U, UNKNOWN
     Route: 065
     Dates: start: 20230130
  3. HUMALOG [Suspect]
     Active Substance: INSULIN LISPRO
     Dosage: 26 U, UNKNOWN
     Route: 065
     Dates: start: 20230130
  4. HUMALOG [Suspect]
     Active Substance: INSULIN LISPRO
     Dosage: 26 U, UNKNOWN
     Route: 065
     Dates: start: 20230131
  5. HUMALOG [Suspect]
     Active Substance: INSULIN LISPRO
     Dosage: 26 U, UNKNOWN
     Route: 065
     Dates: start: 20230131
  6. HUMALOG [Suspect]
     Active Substance: INSULIN LISPRO
     Dosage: 47 U, UNKNOWN
     Route: 065
     Dates: start: 20230131
  7. HUMALOG [Suspect]
     Active Substance: INSULIN LISPRO
     Dosage: 27 U, UNKNOWN
     Route: 065
     Dates: start: 20230131
  8. HUMALOG [Suspect]
     Active Substance: INSULIN LISPRO
     Dosage: 30 U, UNKNOWN
     Route: 065
     Dates: start: 20230201
  9. HUMALOG [Suspect]
     Active Substance: INSULIN LISPRO
     Dosage: 20 U, UNKNOWN
     Route: 065
     Dates: start: 20230201
  10. HUMALOG [Suspect]
     Active Substance: INSULIN LISPRO
     Dosage: 25 U, UNKNOWN
     Route: 065
     Dates: start: 20230201
  11. HUMALOG [Suspect]
     Active Substance: INSULIN LISPRO
     Dosage: 23 U, UNKNOWN
     Route: 065
     Dates: start: 20230201
  12. HUMALOG [Suspect]
     Active Substance: INSULIN LISPRO
     Dosage: 37 U, UNKNOWN
     Route: 065
     Dates: start: 20230202
  13. HUMALOG [Suspect]
     Active Substance: INSULIN LISPRO
     Dosage: 24 U, UNKNOWN
     Route: 065
     Dates: start: 20230202
  14. HUMALOG [Suspect]
     Active Substance: INSULIN LISPRO
     Dosage: 39 U, UNKNOWN
     Route: 065
     Dates: start: 20230202
  15. HUMALOG [Suspect]
     Active Substance: INSULIN LISPRO
     Dosage: 35 U, UNKNOWN
     Route: 065
     Dates: start: 20230202

REACTIONS (3)
  - Memory impairment [Unknown]
  - Blood glucose increased [Unknown]
  - Drug ineffective [Unknown]
